FAERS Safety Report 5660913-X (Version None)
Quarter: 2008Q1

REPORT INFORMATION
  Report Type: 
  Country: None (occurrence: None)
  Receive Date: 20080311
  Receipt Date: 20080228
  Transmission Date: 20080703
  Serious: Yes (Other)
  Sender: FDA-Public Use
  Company Number: US-WYE-H02866408

PATIENT
  Age: 22 Year
  Sex: Female
  Weight: 50.85 kg

DRUGS (4)
  1. EFFEXOR XR [Suspect]
     Indication: ANXIETY
     Route: 048
     Dates: start: 20070101, end: 20080101
  2. EFFEXOR XR [Suspect]
     Indication: DEPRESSION
     Route: 048
     Dates: start: 20080101, end: 20080101
  3. EFFEXOR XR [Suspect]
     Route: 048
     Dates: start: 20080101, end: 20080224
  4. VITAMINS [Concomitant]
     Dosage: UNKNOWN

REACTIONS (8)
  - ABNORMAL DREAMS [None]
  - AGITATION [None]
  - DIZZINESS [None]
  - DRUG WITHDRAWAL SYNDROME [None]
  - FATIGUE [None]
  - PANIC ATTACK [None]
  - TACHYCARDIA [None]
  - VISION BLURRED [None]
